FAERS Safety Report 8438401-7 (Version None)
Quarter: 2012Q2

REPORT INFORMATION
  Report Type: 
  Country: None (occurrence: None)
  Receive Date: 20120614
  Receipt Date: 20120605
  Transmission Date: 20120825
  Serious: Yes (Hospitalization)
  Sender: FDA-Public Use
  Company Number: US-ELI_LILLY_AND_COMPANY-US201201003945

PATIENT
  Sex: Female
  Weight: 50.34 kg

DRUGS (19)
  1. VESICARE [Concomitant]
     Dosage: UNK, EACH MORNING
  2. LEVOTHYROXINE SODIUM [Concomitant]
     Dosage: UNK, QD
  3. FUROSEMIDE [Concomitant]
     Dosage: UNK, QD
  4. CELEBREX [Concomitant]
     Dosage: 200 MG, QD
  5. CALCIUM CARBONATE [Concomitant]
     Dosage: 600 MG, UNKNOWN
  6. FORTEO [Suspect]
     Dosage: 20 UG, QD
     Route: 065
  7. FORTEO [Suspect]
     Dosage: 20 UG, QD
     Route: 065
  8. FORTEO [Suspect]
     Dosage: 20 UG, QD
     Route: 065
  9. SEROQUEL [Concomitant]
     Dosage: UNK, EACH EVENING
  10. FORTEO [Suspect]
     Dosage: 20 UG, QD
     Route: 065
  11. SIMVASTATIN [Concomitant]
  12. HYDROCODONE [Concomitant]
     Indication: PAIN
     Dosage: UNK, PRN
  13. METOPROLOL TARTRATE [Concomitant]
     Dosage: UNK, BID
  14. OMEPRAZOLE [Concomitant]
     Dosage: UNK, QD
  15. MULTI-VITAMINS [Concomitant]
     Dosage: UNK, EACH MORNING
  16. FORTEO [Suspect]
     Indication: OSTEOPOROSIS
     Dosage: 20 UG, QD
     Route: 065
     Dates: start: 20110101
  17. CITRACAL [Concomitant]
     Dosage: UNK, BID
  18. LIPITOR [Concomitant]
     Dosage: UNK
  19. PRINIVIL [Concomitant]
     Dosage: UNK

REACTIONS (11)
  - FATIGUE [None]
  - ARTHRALGIA [None]
  - SURGERY [None]
  - PAIN IN EXTREMITY [None]
  - CONSTIPATION [None]
  - OSTEOARTHRITIS [None]
  - MALAISE [None]
  - INAPPROPRIATE SCHEDULE OF DRUG ADMINISTRATION [None]
  - DRY MOUTH [None]
  - DRUG DOSE OMISSION [None]
  - INCORRECT STORAGE OF DRUG [None]
